FAERS Safety Report 19897045 (Version 2)
Quarter: 2021Q4

REPORT INFORMATION
  Report Type: Other
  Country: US (occurrence: US)
  Receive Date: 20210930
  Receipt Date: 20211122
  Transmission Date: 20220304
  Serious: Yes (Other)
  Sender: FDA-Public Use
  Company Number: US-002147023-NVSC2021US202832

PATIENT
  Age: 79 Year
  Sex: Female

DRUGS (3)
  1. OMALIZUMAB [Suspect]
     Active Substance: OMALIZUMAB
     Indication: Asthma
     Route: 065
  2. OMALIZUMAB [Suspect]
     Active Substance: OMALIZUMAB
     Indication: Nasal polyps
  3. OMALIZUMAB [Suspect]
     Active Substance: OMALIZUMAB
     Indication: Rhinitis allergic

REACTIONS (2)
  - Eosinophilic pneumonia [Unknown]
  - Pulmonary mass [Recovered/Resolved]
